FAERS Safety Report 26063512 (Version 1)
Quarter: 2025Q4

REPORT INFORMATION
  Report Type: Spontaneous
  Country: EU (occurrence: EU)
  Receive Date: 20251119
  Receipt Date: 20251119
  Transmission Date: 20260117
  Serious: Yes (Hospitalization)
  Sender: AMGEN
  Company Number: None

PATIENT
  Age: 56 Year
  Sex: Female

DRUGS (2)
  1. KYPROLIS [Suspect]
     Active Substance: CARFILZOMIB
     Indication: Plasma cell myeloma
     Dosage: ISATUXIMAB 650 MG + CARFILZOMIB 33 MG + DEXAMETHASONE, EVERY 8 DAYS
     Route: 040
     Dates: start: 20240521, end: 20250217
  2. SARCLISA [Suspect]
     Active Substance: ISATUXIMAB-IRFC
     Indication: Plasma cell myeloma
     Dosage: ISATUXIMAB 650 MG + CARFILZOMIB 33 MG + DEXAMETHASONE, EVERY 8 DAYS
     Route: 040
     Dates: start: 20240521, end: 20250217

REACTIONS (3)
  - Prerenal failure [Recovered/Resolved]
  - Acute kidney injury [Recovered/Resolved]
  - Thrombotic microangiopathy [Recovered/Resolved]

NARRATIVE: CASE EVENT DATE: 20250222
